FAERS Safety Report 7849412-4 (Version None)
Quarter: 2011Q4

REPORT INFORMATION
  Report Type: 
  Country: None (occurrence: None)
  Receive Date: 20111024
  Receipt Date: 20111004
  Transmission Date: 20120403
  Serious: Yes (Hospitalization)
  Sender: FDA-Public Use
  Company Number: JPI-P-017445

PATIENT
  Age: 42 Year
  Sex: Female
  Weight: 79.3795 kg

DRUGS (2)
  1. XYREM [Suspect]
     Indication: CATAPLEXY
     Dosage: , ORAL; (4.5 GM, 1 D), ORAL
     Route: 048
     Dates: start: 20100803
  2. XYREM [Suspect]
     Indication: CATAPLEXY
     Dosage: , ORAL; (4.5 GM, 1 D), ORAL
     Route: 048
     Dates: end: 20110929

REACTIONS (6)
  - INTERVERTEBRAL DISC DEGENERATION [None]
  - HYPOAESTHESIA [None]
  - PAIN IN EXTREMITY [None]
  - DYSPNOEA [None]
  - URINARY RETENTION [None]
  - ARTHRALGIA [None]
